FAERS Safety Report 21919729 (Version 1)
Quarter: 2023Q1

REPORT INFORMATION
  Report Type: Spontaneous
  Country: US (occurrence: None)
  Receive Date: 20230126
  Receipt Date: 20230126
  Transmission Date: 20230417
  Serious: No
  Sender: FDA-Public Use
  Company Number: None

PATIENT
  Sex: Male

DRUGS (1)
  1. CAPECITABINE [Suspect]
     Active Substance: CAPECITABINE
     Dosage: 1300MG BID ORAL?
     Route: 048

REACTIONS (7)
  - Seizure [None]
  - Therapy interrupted [None]
  - Product residue present [None]
  - Nausea [None]
  - Decreased appetite [None]
  - Weight decreased [None]
  - Dehydration [None]
